FAERS Safety Report 24937698 (Version 1)
Quarter: 2025Q1

REPORT INFORMATION
  Report Type: Report from Study
  Country: US (occurrence: US)
  Receive Date: 20250206
  Receipt Date: 20250206
  Transmission Date: 20250409
  Serious: Yes (Hospitalization, Other)
  Sender: ACADIA PHARMACEUTICALS
  Company Number: US-ACADIA PHARMACEUTICALS INC.-ACA-2025-PIM-001113

PATIENT
  Age: 66 Year
  Sex: Male

DRUGS (15)
  1. NUPLAZID [Suspect]
     Active Substance: PIMAVANSERIN TARTRATE
     Indication: Parkinson^s disease
     Dosage: 34 MILLIGRAM, QD
     Route: 048
     Dates: start: 2022, end: 20250127
  2. ACETAMINOPHEN\HYDROCODONE [Concomitant]
     Active Substance: ACETAMINOPHEN\HYDROCODONE
  3. AMLODIPINE BESYLATE [Concomitant]
     Active Substance: AMLODIPINE BESYLATE
  4. CLOBETASOL PROPIONATE [Concomitant]
     Active Substance: CLOBETASOL PROPIONATE
  5. DONEPEZIL [Concomitant]
     Active Substance: DONEPEZIL
  6. FINASTERIDE [Concomitant]
     Active Substance: FINASTERIDE
  7. GOCOVRI [Concomitant]
     Active Substance: AMANTADINE
  8. IBUPROFEN [Concomitant]
     Active Substance: IBUPROFEN
  9. KETOCONAZOLE [Concomitant]
     Active Substance: KETOCONAZOLE
  10. LAMOTRIGINE [Concomitant]
     Active Substance: LAMOTRIGINE
  11. METHYLPREDNISOLONE [Concomitant]
     Active Substance: METHYLPREDNISOLONE
  12. MUPIROCIN [Concomitant]
     Active Substance: MUPIROCIN
  13. RYTARY [Concomitant]
     Active Substance: CARBIDOPA\LEVODOPA
  14. TAMSULOSIN [Concomitant]
     Active Substance: TAMSULOSIN
  15. TIZANIDINE [Concomitant]
     Active Substance: TIZANIDINE

REACTIONS (2)
  - Cerebrovascular accident [Recovered/Resolved]
  - Adverse drug reaction [Unknown]

NARRATIVE: CASE EVENT DATE: 20250117
